FAERS Safety Report 5974039-9 (Version None)
Quarter: 2008Q4

REPORT INFORMATION
  Report Type: 
  Country: None (occurrence: None)
  Receive Date: 20081201
  Receipt Date: 20080124
  Transmission Date: 20090506
  Serious: No
  Sender: FDA-Public Use
  Company Number: US-AMGEN-KDL261105

PATIENT
  Sex: Male
  Weight: 72.6 kg

DRUGS (13)
  1. ENBREL [Suspect]
     Indication: PSORIATIC ARTHROPATHY
     Dates: start: 20040101
  2. PREDNISONE TAB [Concomitant]
     Route: 048
  3. NIASPAN [Concomitant]
     Route: 048
  4. METHOTREXATE [Concomitant]
     Route: 048
  5. VITAMIN B COMPLEX CAP [Concomitant]
     Route: 048
  6. COENZYME Q10 [Concomitant]
  7. FISH OIL [Concomitant]
  8. GLUCOSAMINE [Concomitant]
     Route: 048
  9. MULTI-VITAMINS [Concomitant]
     Route: 048
  10. CALCIUM [Concomitant]
     Route: 048
  11. FOLIC ACID [Concomitant]
     Route: 048
  12. VITAMIN D [Concomitant]
     Route: 048
  13. INFLUENZA VACCINE [Concomitant]

REACTIONS (2)
  - DERMATITIS [None]
  - RASH PRURITIC [None]
